FAERS Safety Report 20612479 (Version 1)
Quarter: 2022Q1

REPORT INFORMATION
  Report Type: Spontaneous
  Country: US (occurrence: None)
  Receive Date: 20220318
  Receipt Date: 20220318
  Transmission Date: 20220424
  Serious: Yes (Life-Threatening)
  Sender: FDA-Public Use
  Company Number: None

PATIENT
  Age: 64 Year
  Sex: Female
  Weight: 78.3 kg

DRUGS (3)
  1. HALDOL DECANOATE [Suspect]
     Active Substance: HALOPERIDOL DECANOATE
     Indication: Schizophrenia
     Dosage: OTHER FREQUENCY : EVERY 4 WEEKS;?
     Route: 030
     Dates: end: 20220217
  2. ASACOL HD [Concomitant]
     Active Substance: MESALAMINE
     Dates: start: 20150427
  3. MELATONIN [Concomitant]
     Active Substance: MELATONIN
     Dates: start: 20210715

REACTIONS (2)
  - Agranulocytosis [None]
  - Neutrophil count decreased [None]

NARRATIVE: CASE EVENT DATE: 20211012
